FAERS Safety Report 6278456-1 (Version None)
Quarter: 2009Q3

REPORT INFORMATION
  Report Type: 
  Country: None (occurrence: None)
  Receive Date: 20090722
  Receipt Date: 20090713
  Transmission Date: 20100115
  Serious: Yes (Other)
  Sender: FDA-Public Use
  Company Number: PHHY2009BR28824

PATIENT
  Age: 78 Year
  Sex: Male

DRUGS (1)
  1. TEGRETOL [Suspect]
     Indication: PAIN
     Dosage: 200MG 2 TABS DAILY
     Route: 048

REACTIONS (1)
  - ULCER [None]
